FAERS Safety Report 8239329-8 (Version None)
Quarter: 2012Q1

REPORT INFORMATION
  Report Type: 
  Country: None (occurrence: None)
  Receive Date: 20120326
  Receipt Date: 20120320
  Transmission Date: 20120608
  Serious: Yes (Death, Other)
  Sender: FDA-Public Use
  Company Number: CIP-2012-00099

PATIENT
  Age: 56 Year
  Sex: Female

DRUGS (7)
  1. DOCETAXEL [Concomitant]
  2. PACLITAXEL [Suspect]
     Indication: BREAST CANCER
     Dosage: 100 MG/M(2) (WEEKLY)
  3. PACLITAXEL [Suspect]
     Indication: METASTASES TO MENINGES
     Dosage: 100 MG/M(2) (WEEKLY)
  4. DOXORUBICIN HCL [Concomitant]
  5. CARBOPLATIN [Suspect]
     Indication: METASTASES TO MENINGES
     Dosage: AUC 6 (WEEKLY)
  6. CARBOPLATIN [Suspect]
     Indication: BREAST CANCER
     Dosage: AUC 6 (WEEKLY)
  7. CYCLOPHOSPHAMIDE [Concomitant]

REACTIONS (1)
  - UROSEPSIS [None]
